FAERS Safety Report 25617677 (Version 1)
Quarter: 2025Q3

REPORT INFORMATION
  Report Type: Spontaneous
  Country: TW (occurrence: TW)
  Receive Date: 20250729
  Receipt Date: 20250729
  Transmission Date: 20251021
  Serious: Yes (Hospitalization, Other)
  Sender: PFIZER
  Company Number: TW-PFIZER INC-PV202500090463

PATIENT
  Age: 66 Year
  Sex: Female
  Weight: 40.3 kg

DRUGS (6)
  1. PAXLOVID [Suspect]
     Active Substance: NIRMATRELVIR\RITONAVIR
     Indication: COVID-19
     Route: 048
     Dates: start: 20250628, end: 20250628
  2. RECOUGH [Concomitant]
     Indication: Cough
     Route: 048
     Dates: start: 20250628, end: 20250628
  3. AZUNEN [Concomitant]
     Indication: Prophylaxis
     Route: 048
     Dates: start: 20250628, end: 20250628
  4. DICLOFENAC [Concomitant]
     Active Substance: DICLOFENAC
     Indication: Pyrexia
     Route: 048
     Dates: start: 20250628, end: 20250628
  5. NORVASC [Concomitant]
     Active Substance: AMLODIPINE BESYLATE
     Indication: Hypertension
     Dosage: 5.0 MG, QD
     Route: 048
     Dates: start: 20250628
  6. LIPITOR [Concomitant]
     Active Substance: ATORVASTATIN CALCIUM
     Indication: Hyperlipidaemia
     Dosage: 10.0 MG, QD
     Route: 048
     Dates: start: 20250628

REACTIONS (8)
  - Bradycardia [Recovered/Resolved]
  - Acute myocardial infarction [Recovered/Resolved]
  - Sinus node dysfunction [Recovered/Resolved]
  - Dizziness [Recovered/Resolved]
  - Syncope [Recovered/Resolved]
  - Fall [Recovered/Resolved]
  - Skin laceration [Recovered/Resolved]
  - Off label use [Unknown]

NARRATIVE: CASE EVENT DATE: 20250101
